FAERS Safety Report 11309059 (Version 3)
Quarter: 2016Q4

REPORT INFORMATION
  Report Type: Spontaneous
  Country: FR (occurrence: FR)
  Receive Date: 20150724
  Receipt Date: 20161122
  Transmission Date: 20170206
  Serious: Yes (Other)
  Sender: FDA-Public Use
  Company Number: FR-TEVA-580474ISR

PATIENT
  Age: 38 Year
  Sex: Male

DRUGS (8)
  1. ETOPOSIDE TEVA [Suspect]
     Active Substance: ETOPOSIDE
     Indication: ACUTE LYMPHOCYTIC LEUKAEMIA
     Route: 042
     Dates: start: 20150331, end: 20150401
  2. ARACYTINE [Suspect]
     Active Substance: CYTARABINE
     Indication: ACUTE LYMPHOCYTIC LEUKAEMIA
     Route: 024
     Dates: start: 20150401, end: 20150401
  3. METHOTREXATE (METHOTREXATE SODIUM) [Suspect]
     Active Substance: METHOTREXATE SODIUM
     Indication: ACUTE LYMPHOCYTIC LEUKAEMIA
     Route: 042
     Dates: start: 20150331, end: 20150331
  4. RECOMBINANT HUMAN GRANULOCYTE-COLONY STIMULATING FACTOR [Concomitant]
     Route: 058
     Dates: start: 20150402
  5. KYTRIL [Suspect]
     Active Substance: GRANISETRON HYDROCHLORIDE
     Route: 041
     Dates: start: 20150331, end: 20150401
  6. ENDOXAN 1000 MG [Suspect]
     Active Substance: CYCLOPHOSPHAMIDE
     Indication: ACUTE LYMPHOCYTIC LEUKAEMIA
     Route: 042
     Dates: start: 20150331, end: 20150401
  7. DEPO-MEDROL [Suspect]
     Active Substance: METHYLPREDNISOLONE ACETATE
     Indication: ACUTE LYMPHOCYTIC LEUKAEMIA
     Route: 024
     Dates: start: 20150401, end: 20150401
  8. METHOTREXATE BIODIM [Suspect]
     Active Substance: METHOTREXATE
     Indication: ACUTE LYMPHOCYTIC LEUKAEMIA
     Route: 024
     Dates: start: 20150401, end: 20150401

REACTIONS (2)
  - Thrombocytopenia [Recovered/Resolved]
  - Febrile bone marrow aplasia [Recovered/Resolved]

NARRATIVE: CASE EVENT DATE: 20150331
